FAERS Safety Report 9136664 (Version 1)
Quarter: 2013Q1

REPORT INFORMATION
  Report Type: Spontaneous
  Country: US (occurrence: US)
  Receive Date: 20130304
  Receipt Date: 20130304
  Transmission Date: 20140127
  Serious: No
  Sender: FDA-Public Use
  Company Number: US-ABBOTT-10P-163-0802028-00

PATIENT
  Sex: Male
  Weight: 85 kg

DRUGS (9)
  1. ANDROGEL [Suspect]
     Indication: BLOOD TESTOSTERONE DECREASED
     Dosage: DAILY DOSE:  UNKNOWN
     Route: 062
     Dates: start: 2009, end: 2010
  2. ANDROGEL [Suspect]
     Dosage: DAILY DOSE:  UNKNOWN, VIA PUMP
     Route: 062
     Dates: start: 2010, end: 20120930
  3. ANDROGEL [Suspect]
     Dates: start: 20121001
  4. OMEGA-3 TRIGLYCERIDES [Concomitant]
     Indication: PRODUCT USED FOR UNKNOWN INDICATION
     Dosage: DAILY DOSE:  UNKNOWN
     Route: 065
  5. PROZAC [Concomitant]
     Indication: OBSESSIVE-COMPULSIVE DISORDER
     Dosage: DAILY DOSE:  UNKNOWN
     Route: 065
  6. BABY ASPIRIN [Concomitant]
     Indication: CARDIOVASCULAR EVENT PROPHYLAXIS
  7. UNKNOWN SUPPLEMENTS [Concomitant]
     Indication: SUPPLEMENTATION THERAPY
  8. NIACIN [Concomitant]
     Indication: LIPIDS INCREASED
  9. OMACOR [Concomitant]
     Indication: LIPIDS INCREASED

REACTIONS (2)
  - Haemoglobin increased [Not Recovered/Not Resolved]
  - Haematocrit increased [Not Recovered/Not Resolved]
